FAERS Safety Report 16304111 (Version 3)
Quarter: 2019Q2

REPORT INFORMATION
  Report Type: Report from Study
  Country: BW (occurrence: BW)
  Receive Date: 20190513
  Receipt Date: 20190517
  Transmission Date: 20190711
  Serious: Yes (Death, Other)
  Sender: FDA-Public Use
  Company Number: ZA-VIIV HEALTHCARE LIMITED-ZA2019GSK082908

PATIENT
  Age: 36 Year
  Sex: Female

DRUGS (5)
  1. PARACETAMOL [Concomitant]
     Active Substance: ACETAMINOPHEN
     Dosage: 1 G, UNK
     Route: 048
  2. DOLUTEGRAVIR [Suspect]
     Active Substance: DOLUTEGRAVIR
     Indication: ACQUIRED IMMUNODEFICIENCY SYNDROME
     Dosage: UNK
     Dates: start: 20170727
  3. COTRIMOXAZOLE [Concomitant]
     Active Substance: SULFAMETHOXAZOLE\TRIMETHOPRIM
     Dosage: 960 MG, QD
     Route: 048
  4. OMEPRAZOLE. [Concomitant]
     Active Substance: OMEPRAZOLE
     Dosage: 20 G, QD
     Route: 048
  5. MICONAZOLE GEL [Concomitant]
     Dosage: UNK
     Route: 048

REACTIONS (1)
  - Death [Fatal]
